FAERS Safety Report 23131671 (Version 1)
Quarter: 2023Q4

REPORT INFORMATION
  Report Type: Spontaneous
  Country: US (occurrence: US)
  Receive Date: 20231031
  Receipt Date: 20231031
  Transmission Date: 20240109
  Serious: No
  Sender: FDA-Public Use
  Company Number: US-SA-SAC20231030000243

PATIENT
  Age: 3 Year
  Sex: Female

DRUGS (5)
  1. DUPIXENT [Suspect]
     Active Substance: DUPILUMAB
     Indication: Eczema
     Dosage: 300 MG, Q4W
     Route: 058
     Dates: start: 20230925
  2. TACROLIMUS [Concomitant]
     Active Substance: TACROLIMUS
  3. KENALOG [Concomitant]
     Active Substance: TRIAMCINOLONE ACETONIDE
  4. CLARITIN [Concomitant]
     Active Substance: LORATADINE
  5. VITAMINS NOS [Concomitant]
     Active Substance: VITAMINS

REACTIONS (4)
  - Diarrhoea [Unknown]
  - Somnolence [Unknown]
  - Injection site urticaria [Recovered/Resolved]
  - Injection site pain [Recovered/Resolved]

NARRATIVE: CASE EVENT DATE: 20230101
